FAERS Safety Report 8541457-4 (Version None)
Quarter: 2012Q3

REPORT INFORMATION
  Report Type: 
  Country: None (occurrence: None)
  Receive Date: 20120726
  Receipt Date: 20110926
  Transmission Date: 20120928
  Serious: No
  Sender: FDA-Public Use
  Company Number: US-ASTRAZENECA-2011SE57650

PATIENT
  Age: 59 Year
  Sex: Male
  Weight: 95.3 kg

DRUGS (2)
  1. OTHER MEDICATIONS [Concomitant]
  2. SEROQUEL [Suspect]
     Indication: MOOD SWINGS
     Route: 048
     Dates: start: 20101101

REACTIONS (3)
  - OFF LABEL USE [None]
  - MENTAL DISORDER [None]
  - ANGER [None]
